FAERS Safety Report 7278904-4 (Version None)
Quarter: 2010Q4

REPORT INFORMATION
  Report Type: 
  Country: None (occurrence: None)
  Receive Date: 20101206
  Receipt Date: 20101026
  Transmission Date: 20110411
  Serious: Yes (Life-Threatening, Other)
  Sender: FDA-Public Use
  Company Number: 2010SP057294

PATIENT
  Sex: Female

DRUGS (1)
  1. SAPHRIS [Suspect]
     Indication: PRODUCT USED FOR UNKNOWN INDICATION
     Dosage: 5 MG;BID;SL
     Route: 060
     Dates: start: 20101025, end: 20101026

REACTIONS (2)
  - DYSTONIA [None]
  - MUSCULOSKELETAL STIFFNESS [None]
